FAERS Safety Report 23714184 (Version 2)
Quarter: 2024Q2

REPORT INFORMATION
  Report Type: Report from Study
  Country: US (occurrence: US)
  Receive Date: 20240405
  Receipt Date: 20240412
  Transmission Date: 20240716
  Serious: No
  Sender: FDA-Public Use
  Company Number: US-SA-SAC20240403000823

PATIENT
  Age: 26 Year
  Sex: Female

DRUGS (4)
  1. TEPLIZUMAB-MZWV [Suspect]
     Active Substance: TEPLIZUMAB-MZWV
     Indication: Type 1 diabetes mellitus
     Dosage: 104.91 UG, 1X
     Route: 042
     Dates: start: 20240326, end: 20240326
  2. TEPLIZUMAB-MZWV [Suspect]
     Active Substance: TEPLIZUMAB-MZWV
     Dosage: 201.75 UNK, 1X
     Route: 042
     Dates: start: 20240327, end: 20240327
  3. TEPLIZUMAB-MZWV [Suspect]
     Active Substance: TEPLIZUMAB-MZWV
     Dosage: 403.5 UNK
     Route: 042
     Dates: start: 20240328, end: 20240401
  4. TEPLIZUMAB-MZWV [Suspect]
     Active Substance: TEPLIZUMAB-MZWV
     Dosage: 1662.42 UG, 1X
     Route: 042
     Dates: start: 20240402, end: 20240403

REACTIONS (7)
  - Peripheral swelling [Recovering/Resolving]
  - Blood glucose fluctuation [Recovering/Resolving]
  - Pyrexia [Unknown]
  - Pain [Unknown]
  - Rash [Recovering/Resolving]
  - Nausea [Recovering/Resolving]
  - Urticaria [Unknown]

NARRATIVE: CASE EVENT DATE: 20240328
